FAERS Safety Report 8051862-0 (Version None)
Quarter: 2012Q1

REPORT INFORMATION
  Report Type: 
  Country: None (occurrence: None)
  Receive Date: 20120118
  Receipt Date: 20120106
  Transmission Date: 20120608
  Serious: Yes (Hospitalization, Other)
  Sender: FDA-Public Use
  Company Number: US-ELI_LILLY_AND_COMPANY-US201112001258

PATIENT
  Age: 14 Year
  Sex: Female
  Weight: 48.98 kg

DRUGS (2)
  1. STRATTERA [Suspect]
     Indication: ATTENTION DEFICIT/HYPERACTIVITY DISORDER
     Dosage: 18 MG, EACH MORNING
     Route: 048
     Dates: start: 20111123
  2. DAYTRANA [Concomitant]
     Dosage: 30 MG, EACH MORNING
     Route: 062

REACTIONS (3)
  - VIOLENCE-RELATED SYMPTOM [None]
  - SUICIDAL IDEATION [None]
  - OPPOSITIONAL DEFIANT DISORDER [None]
